FAERS Safety Report 11982704 (Version 1)
Quarter: 2016Q1

REPORT INFORMATION
  Report Type: Report from Study
  Country: NO (occurrence: NO)
  Receive Date: 20160201
  Receipt Date: 20160201
  Transmission Date: 20160526
  Serious: Yes (Other)
  Sender: FDA-Public Use
  Company Number: NO-BAYER-2016-001795

PATIENT
  Age: 46 Year
  Sex: Female

DRUGS (1)
  1. MIRENA [Suspect]
     Active Substance: LEVONORGESTREL
     Dosage: 20 MCG/24HR, CONT
     Route: 015
     Dates: start: 20101209, end: 20160121

REACTIONS (7)
  - Device difficult to use [None]
  - Urinary tract infection [None]
  - Post procedural discomfort [None]
  - Procedural pain [None]
  - Device breakage [None]
  - Complication of device removal [None]
  - Device use error [None]

NARRATIVE: CASE EVENT DATE: 201512
